FAERS Safety Report 9237319 (Version 1)
Quarter: 2013Q2

REPORT INFORMATION
  Report Type: Spontaneous
  Country: FR (occurrence: FR)
  Receive Date: 20130417
  Receipt Date: 20130417
  Transmission Date: 20140414
  Serious: Yes (Life-Threatening, Other)
  Sender: FDA-Public Use
  Company Number: FR-ELI_LILLY_AND_COMPANY-FR201304002502

PATIENT
  Sex: Male

DRUGS (1)
  1. UMULINE [Suspect]
     Indication: BLOOD GLUCOSE INCREASED
     Dosage: UNK
     Route: 042
     Dates: start: 20120701, end: 20120701

REACTIONS (5)
  - Hypoglycaemia [Recovered/Resolved]
  - Altered state of consciousness [Unknown]
  - Hyperhidrosis [Unknown]
  - Incorrect dose administered [Recovered/Resolved]
  - Drug administration error [Recovered/Resolved]
